FAERS Safety Report 4760492-5 (Version None)
Quarter: 2005Q3

REPORT INFORMATION
  Report Type: 
  Country: None (occurrence: None)
  Receive Date: 20050902
  Receipt Date: 20050822
  Transmission Date: 20060218
  Serious: Yes (Hospitalization)
  Sender: FDA-Public Use
  Company Number: US-MERCK-0508USA03640

PATIENT
  Age: 56 Year
  Sex: Male

DRUGS (8)
  1. LASIX [Concomitant]
     Route: 065
  2. ALTACE [Concomitant]
     Indication: HYPERTENSION
     Route: 065
  3. ACTOS [Concomitant]
     Indication: DIABETES MELLITUS
     Route: 065
  4. DARVOCET-N 100 [Concomitant]
     Route: 065
  5. ASPIRIN [Concomitant]
     Route: 065
  6. VIOXX [Suspect]
     Indication: ARTHRITIS
     Route: 048
     Dates: start: 19990101, end: 20040930
  7. NORVASC [Concomitant]
     Indication: HYPERTENSION
     Route: 065
  8. GLUCOTROL [Concomitant]
     Indication: DIABETES MELLITUS
     Route: 065

REACTIONS (2)
  - CORONARY ARTERY DISEASE [None]
  - MYOCARDIAL INFARCTION [None]
